FAERS Safety Report 5051113-5 (Version None)
Quarter: 2006Q3

REPORT INFORMATION
  Report Type: 
  Country: None (occurrence: None)
  Receive Date: 20060714
  Receipt Date: 20060704
  Transmission Date: 20061208
  Serious: Yes (Hospitalization)
  Sender: FDA-Public Use
  Company Number: FR-JNJFOC-20060702074

PATIENT
  Age: 30 Year
  Sex: Male

DRUGS (3)
  1. CONTRAMAL [Suspect]
     Indication: ANALGESIC THERAPY
     Route: 065
  2. EFFERALGAN CODEINE [Suspect]
     Indication: DRUG USE FOR UNKNOWN INDICATION
     Route: 048
  3. DAFALGAN [Concomitant]
     Indication: ANALGESIC THERAPY
     Route: 065

REACTIONS (1)
  - PANCREATITIS ACUTE [None]
